FAERS Safety Report 8973121 (Version 2)
Quarter: 2012Q4

REPORT INFORMATION
  Report Type: 
  Country: JP (occurrence: JP)
  Receive Date: 20121218
  Receipt Date: 20121228
  Transmission Date: 20130627
  Serious: Yes (Hospitalization)
  Sender: FDA-Public Use
  Company Number: JP-009507513-1212JPN006392

PATIENT
  Age: 69 Year
  Sex: Male
  Weight: 57 kg

DRUGS (8)
  1. REBETOL [Suspect]
     Indication: CHRONIC HEPATITIS C
     Dosage: 600 mg, qd
     Route: 048
     Dates: start: 20120907, end: 20121025
  2. REBETOL [Suspect]
     Dosage: 200 UNK, UNK
     Route: 048
     Dates: start: 20121026, end: 20121128
  3. REBETOL [Suspect]
     Dosage: UNK
     Dates: start: 20121203
  4. PEGINTRON [Suspect]
     Indication: CHRONIC HEPATITIS C
     Dosage: 1.4 Microgram per kilogram, qw
     Route: 058
     Dates: start: 20120907, end: 20121122
  5. TELAVIC [Suspect]
     Indication: CHRONIC HEPATITIS C
     Dosage: 1500 mg, qd
     Route: 048
     Dates: start: 20120907, end: 20121127
  6. ALOSITOL [Concomitant]
     Indication: HYPERURICAEMIA
     Dosage: daily dose unknown, qd
     Route: 048
  7. OMEPRAL [Concomitant]
     Indication: GASTROOESOPHAGEAL REFLUX DISEASE
     Dosage: daily dose unknown, qd
     Route: 048
     Dates: end: 20121018
  8. NEXIUM [Suspect]
     Indication: GASTROOESOPHAGEAL REFLUX DISEASE
     Dosage: 20 mg, qd
     Route: 048
     Dates: start: 20121019

REACTIONS (2)
  - Pancreatitis acute [Recovering/Resolving]
  - Pancreatitis [Recovered/Resolved]
